FAERS Safety Report 6846089-1 (Version None)
Quarter: 2010Q3

REPORT INFORMATION
  Report Type: 
  Country: None (occurrence: None)
  Receive Date: 20100715
  Receipt Date: 20071103
  Transmission Date: 20110219
  Serious: No
  Sender: FDA-Public Use
  Company Number: US-PFIZER INC-2007072967

PATIENT
  Sex: Female
  Weight: 61.23 kg

DRUGS (2)
  1. CHANTIX [Suspect]
     Indication: SMOKING CESSATION THERAPY
     Dates: start: 20070601
  2. PREMARIN [Concomitant]

REACTIONS (4)
  - ANGER [None]
  - MOOD ALTERED [None]
  - NAUSEA [None]
  - WEIGHT INCREASED [None]
